FAERS Safety Report 8981164 (Version 4)
Quarter: 2013Q1

REPORT INFORMATION
  Report Type: Spontaneous
  Country: MX (occurrence: MX)
  Receive Date: 20121221
  Receipt Date: 20130318
  Transmission Date: 20140127
  Serious: Yes (Hospitalization, Other)
  Sender: FDA-Public Use
  Company Number: MX-ABBOTT-12P-107-1025595-00

PATIENT
  Age: 80 Year
  Sex: Male
  Weight: 76 kg

DRUGS (4)
  1. HUMIRA [Suspect]
     Indication: SPONDYLOARTHROPATHY
     Route: 058
     Dates: start: 20120313, end: 20130228
  2. OMEPRAZOL [Concomitant]
     Indication: GASTRITIS
     Route: 048
  3. ATACAN PLUS [Concomitant]
     Indication: HYPERTENSION
     Route: 048
  4. ASPIRINA PROTECT [Concomitant]
     Indication: BLOOD DISORDER
     Route: 048

REACTIONS (2)
  - Urinary bladder polyp [Not Recovered/Not Resolved]
  - Bladder cancer [Unknown]
